FAERS Safety Report 10608367 (Version 2)
Quarter: 2015Q2

REPORT INFORMATION
  Report Type: Spontaneous
  Country: SE (occurrence: SE)
  Receive Date: 20141125
  Receipt Date: 20150420
  Transmission Date: 20150821
  Serious: Yes (Other)
  Sender: FDA-Public Use
  Company Number: SE-MERCK-1411SWE011337

PATIENT
  Age: 69 Year
  Sex: Male

DRUGS (2)
  1. NEORAL SANDIMMUN [Suspect]
     Active Substance: CYCLOSPORINE
     Route: 048
  2. SIMVASTATIN. [Suspect]
     Active Substance: SIMVASTATIN
     Route: 048

REACTIONS (1)
  - Acute kidney injury [Not Recovered/Not Resolved]
